FAERS Safety Report 25616690 (Version 1)
Quarter: 2025Q3

REPORT INFORMATION
  Report Type: Other
  Country: EU (occurrence: EU)
  Receive Date: 20250729
  Receipt Date: 20250729
  Transmission Date: 20251020
  Serious: Yes (Hospitalization, Other)
  Sender: NOVUGEN ONCOLOGY SDN. BHD.
  Company Number: EU-Novugen Oncology Sdn. Bhd.-2181411

PATIENT
  Age: 72 Year
  Sex: Male

DRUGS (8)
  1. ABIRATERONE ACETATE [Suspect]
     Active Substance: ABIRATERONE ACETATE
     Indication: Hormone-refractory prostate cancer
  2. RELUGOLIX [Interacting]
     Active Substance: RELUGOLIX
  3. HYDROMORPHONE HCL [Concomitant]
     Active Substance: HYDROMORPHONE HYDROCHLORIDE
  4. PREGABALIN [Concomitant]
     Active Substance: PREGABALIN
  5. EDOXABAN [Concomitant]
     Active Substance: EDOXABAN
  6. PANTOPRAZOLE SODIUM [Concomitant]
     Active Substance: PANTOPRAZOLE SODIUM
  7. BISOPROLOL [Concomitant]
     Active Substance: BISOPROLOL
  8. ROSUVASTATIN [Interacting]
     Active Substance: ROSUVASTATIN

REACTIONS (2)
  - Acute kidney injury [Unknown]
  - Drug interaction [Unknown]
